FAERS Safety Report 18528331 (Version 2)
Quarter: 2020Q4

REPORT INFORMATION
  Report Type: Spontaneous
  Country: US (occurrence: US)
  Receive Date: 20201120
  Receipt Date: 20201222
  Transmission Date: 20210114
  Serious: No
  Sender: FDA-Public Use
  Company Number: US-PFIZER INC-2020455831

PATIENT
  Age: 73 Year
  Sex: Male

DRUGS (2)
  1. INLYTA [Suspect]
     Active Substance: AXITINIB
     Dosage: UNK
  2. INLYTA [Suspect]
     Active Substance: AXITINIB
     Dosage: 5 MG

REACTIONS (3)
  - Fatigue [Unknown]
  - Blood pressure abnormal [Unknown]
  - Product dose omission issue [Unknown]
